FAERS Safety Report 9713221 (Version 1)
Quarter: 2013Q4

REPORT INFORMATION
  Report Type: Spontaneous
  Country: US (occurrence: US)
  Receive Date: 20131126
  Receipt Date: 20131126
  Transmission Date: 20140711
  Serious: Yes (Other)
  Sender: FDA-Public Use
  Company Number: US-BAYER-2013-141975

PATIENT
  Age: 72 Year
  Sex: Female
  Weight: 80.27 kg

DRUGS (3)
  1. ALEVE CAPLET [Suspect]
     Indication: ARTHRITIS
     Dosage: 2 DF, BID
     Route: 048
     Dates: start: 1965
  2. ALEVE CAPLET [Suspect]
     Indication: ARTHRITIS
     Dosage: 2 DF, BID WITH FOOD
     Route: 048
  3. BAYER ADVANCED ASPIRIN EXTRA STRENGTH [Suspect]
     Indication: ARTHRITIS
     Dosage: 2 DF, BID
     Route: 048

REACTIONS (3)
  - Renal failure [None]
  - Extra dose administered [None]
  - Incorrect drug administration duration [None]
